FAERS Safety Report 15425974 (Version 4)
Quarter: 2022Q3

REPORT INFORMATION
  Report Type: Spontaneous
  Country: IT (occurrence: IT)
  Receive Date: 20180925
  Receipt Date: 20220704
  Transmission Date: 20221026
  Serious: Yes (Hospitalization)
  Sender: FDA-Public Use
  Company Number: PHHY2018IT104744

PATIENT
  Age: 7 Year
  Sex: Male

DRUGS (6)
  1. ACETAMINOPHEN [Suspect]
     Active Substance: ACETAMINOPHEN
     Indication: Ear infection
     Dosage: UNK
     Route: 065
  2. AMOXICILLIN\CLAVULANIC ACID [Suspect]
     Active Substance: AMOXICILLIN\CLAVULANIC ACID
     Indication: Ear infection
     Dosage: UNK
     Route: 065
  3. CLARITHROMYCIN [Suspect]
     Active Substance: CLARITHROMYCIN
     Indication: Ear infection
     Dosage: UNK
     Route: 065
  4. MORNIFLUMATE [Suspect]
     Active Substance: MORNIFLUMATE
     Indication: Ear infection
     Dosage: UNK
     Route: 065
  5. NIFLUMIC ACID [Suspect]
     Active Substance: NIFLUMIC ACID
     Indication: Ear infection
     Dosage: UNK
     Route: 065
  6. ANTIPYRINE\PROCAINE [Suspect]
     Active Substance: ANTIPYRINE\PROCAINE
     Indication: Ear infection
     Dosage: UNK
     Route: 065

REACTIONS (1)
  - Vasculitis [Unknown]
